FAERS Safety Report 7540802-6 (Version None)
Quarter: 2011Q2

REPORT INFORMATION
  Report Type: 
  Country: None (occurrence: None)
  Receive Date: 20110610
  Receipt Date: 20110607
  Transmission Date: 20111010
  Serious: Yes (Other)
  Sender: FDA-Public Use
  Company Number: FR-PFIZER INC-2011024762

PATIENT
  Age: 38 Year
  Sex: Male

DRUGS (1)
  1. LYRICA [Suspect]
     Dosage: MORE THAN 300 MG DAILY

REACTIONS (5)
  - SUICIDAL IDEATION [None]
  - AGITATION [None]
  - DEPRESSION [None]
  - TREMOR [None]
  - DRUG WITHDRAWAL SYNDROME [None]
